FAERS Safety Report 9868032 (Version 3)
Quarter: 2014Q2

REPORT INFORMATION
  Report Type: Spontaneous
  Country: ZA (occurrence: ZA)
  Receive Date: 20140204
  Receipt Date: 20140501
  Transmission Date: 20141212
  Serious: Yes (Death, Other)
  Sender: FDA-Public Use
  Company Number: PHHY2014ZA012459

PATIENT
  Age: 14 Year
  Sex: Female

DRUGS (1)
  1. DICLOFENAC [Suspect]
     Indication: DYSMENORRHOEA
     Dosage: UNK UKN, UNK
     Route: 048

REACTIONS (3)
  - Death [Fatal]
  - Injury [Unknown]
  - Gun shot wound [Unknown]
